FAERS Safety Report 16809452 (Version 1)
Quarter: 2019Q4

REPORT INFORMATION
  Report Type: Spontaneous
  Country: US (occurrence: US)
  Receive Date: 20190915
  Receipt Date: 20190915
  Transmission Date: 20200122
  Serious: Yes (Other)
  Sender: FDA-Public Use
  Company Number: None

PATIENT
  Age: 55 Year
  Sex: Female
  Weight: 76.5 kg

DRUGS (9)
  1. TUMERIC [Concomitant]
     Active Substance: HERBALS\TURMERIC
  2. COENZYME Q10 [Concomitant]
     Active Substance: UBIDECARENONE
  3. VITAMIN D [Concomitant]
     Active Substance: VITAMIN D NOS
  4. PROGESTERONE. [Concomitant]
     Active Substance: PROGESTERONE
  5. MAGNESIUM [Concomitant]
     Active Substance: MAGNESIUM
  6. CIPROFLOXACIN HCL 500MG [Suspect]
     Active Substance: CIPROFLOXACIN HYDROCHLORIDE
     Indication: DIVERTICULITIS
     Dosage: ?          QUANTITY:1 TABLET(S);?
     Route: 048
     Dates: start: 20190903, end: 20190912
  7. ESTRADIOL TRANSDERMAL SYSTEM [Concomitant]
     Active Substance: ESTRADIOL
  8. METRONIDAZOLE 500MG [Suspect]
     Active Substance: METRONIDAZOLE
  9. ASPIRIN. [Concomitant]
     Active Substance: ASPIRIN

REACTIONS (11)
  - Chest pain [None]
  - Asthenia [None]
  - Tachycardia [None]
  - Rash [None]
  - Musculoskeletal pain [None]
  - Abdominal discomfort [None]
  - Hypertension [None]
  - Abdominal distension [None]
  - Headache [None]
  - Feeling abnormal [None]
  - Neck pain [None]

NARRATIVE: CASE EVENT DATE: 20190912
